FAERS Safety Report 18446256 (Version 1)
Quarter: 2020Q4

REPORT INFORMATION
  Report Type: Spontaneous
  Country: US (occurrence: US)
  Receive Date: 20201030
  Receipt Date: 20201030
  Transmission Date: 20210114
  Serious: Yes (Hospitalization)
  Sender: FDA-Public Use
  Company Number: None

PATIENT
  Age: 57 Year
  Sex: Female

DRUGS (6)
  1. METOPROLOL TARTRATE. [Concomitant]
     Active Substance: METOPROLOL TARTRATE
  2. TIZANIDINE. [Concomitant]
     Active Substance: TIZANIDINE
  3. HUMIRA [Suspect]
     Active Substance: ADALIMUMAB
     Indication: RHEUMATOID ARTHRITIS
     Route: 058
     Dates: start: 20191108
  4. LYRICA [Concomitant]
     Active Substance: PREGABALIN
  5. NORVASC [Concomitant]
     Active Substance: AMLODIPINE BESYLATE
  6. LEVOTHYROXIN [Concomitant]
     Active Substance: LEVOTHYROXINE

REACTIONS (6)
  - Fatigue [None]
  - Rheumatoid arthritis [None]
  - Gastric ulcer [None]
  - Therapy interrupted [None]
  - Arthralgia [None]
  - Pain [None]

NARRATIVE: CASE EVENT DATE: 20200726
